FAERS Safety Report 9085144 (Version 1)
Quarter: 2013Q1

REPORT INFORMATION
  Report Type: Report from Study
  Country: US (occurrence: US)
  Receive Date: 20130130
  Receipt Date: 20130130
  Transmission Date: 20140127
  Serious: No
  Sender: FDA-Public Use
  Company Number: US-ABBOTT-12P-163-0953705-00

PATIENT
  Age: 30 Year
  Sex: Male

DRUGS (4)
  1. HUMIRA 40 MG/0.8 ML PEN [Suspect]
     Indication: PSORIASIS
     Dates: start: 20111025
  2. NEXIUM [Concomitant]
     Indication: ABDOMINAL DISCOMFORT
  3. SYNTHYROID [Concomitant]
     Indication: THYROID DISORDER
     Dosage: 40 OR 60MCG
  4. KLONOPIN [Concomitant]
     Indication: ANXIETY

REACTIONS (2)
  - Rash [Not Recovered/Not Resolved]
  - Psoriasis [Unknown]
